FAERS Safety Report 10197689 (Version 2)
Quarter: 2014Q2

REPORT INFORMATION
  Report Type: Spontaneous
  Country: US (occurrence: US)
  Receive Date: 20140527
  Receipt Date: 20140527
  Transmission Date: 20141212
  Serious: No
  Sender: FDA-Public Use
  Company Number: US-BRISTOL-MYERS SQUIBB COMPANY-18958496

PATIENT
  Age: 73 Year
  Sex: Female
  Weight: 64.4 kg

DRUGS (7)
  1. PRAVACHOL [Suspect]
     Indication: HYPERLIPIDAEMIA
     Dosage: DOSE INCREASED:80MG
     Route: 048
  2. PRAVACHOL [Suspect]
     Indication: BLOOD CHOLESTEROL INCREASED
     Dosage: DOSE INCREASED:80MG
     Route: 048
  3. LIPITOR [Suspect]
     Indication: BLOOD CHOLESTEROL INCREASED
  4. ZOCOR [Suspect]
     Indication: BLOOD CHOLESTEROL INCREASED
  5. DILTIAZEM HCL [Concomitant]
  6. ZETIA [Concomitant]
  7. DYAZIDE [Concomitant]

REACTIONS (2)
  - Abdominal pain [Recovered/Resolved]
  - Frequent bowel movements [Recovered/Resolved]
